FAERS Safety Report 19927895 (Version 1)
Quarter: 2021Q4

REPORT INFORMATION
  Report Type: Spontaneous
  Country: US (occurrence: US)
  Receive Date: 20211005
  Receipt Date: 20211005
  Transmission Date: 20220304
  Serious: Yes (Other)
  Sender: FDA-Public Use
  Company Number: None

PATIENT
  Age: 42 Year
  Sex: Male
  Weight: 80.29 kg

DRUGS (4)
  1. REGEN-COV [Suspect]
     Active Substance: CASIRIVIMAB\IMDEVIMAB
     Indication: Syncope
     Dosage: 600MG/600MG IN 10 ML?1145AM - 1150AM
     Route: 048
  2. REGEN-COV [Suspect]
     Active Substance: CASIRIVIMAB\IMDEVIMAB
     Indication: Tachycardia
  3. REGEN-COV [Suspect]
     Active Substance: CASIRIVIMAB\IMDEVIMAB
     Indication: Seizure
  4. REGEN-COV [Suspect]
     Active Substance: CASIRIVIMAB\IMDEVIMAB
     Indication: Loss of consciousness

REACTIONS (7)
  - Malaise [None]
  - Heart rate increased [None]
  - Syncope [None]
  - Muscle tightness [None]
  - Nausea [None]
  - Heart rate decreased [None]
  - Seizure [None]

NARRATIVE: CASE EVENT DATE: 20210926
